FAERS Safety Report 12838563 (Version 2)
Quarter: 2016Q4

REPORT INFORMATION
  Report Type: Report from Study
  Country: US (occurrence: US)
  Receive Date: 20161012
  Receipt Date: 20161221
  Transmission Date: 20170207
  Serious: Yes (Life-Threatening)
  Sender: FDA-Public Use
  Company Number: US-BIOGEN-2016BI00302502

PATIENT
  Sex: Female

DRUGS (1)
  1. AVONEX [Suspect]
     Active Substance: INTERFERON BETA-1A
     Indication: MULTIPLE SCLEROSIS
     Route: 065
     Dates: start: 20000301

REACTIONS (7)
  - Injection site pain [Unknown]
  - Multiple sclerosis relapse [Unknown]
  - Adverse drug reaction [Unknown]
  - General symptom [Unknown]
  - Injection site reaction [Unknown]
  - Surgery [Unknown]
  - Drug ineffective [Unknown]
